FAERS Safety Report 12284243 (Version 2)
Quarter: 2016Q2

REPORT INFORMATION
  Report Type: Spontaneous
  Country: JP (occurrence: JP)
  Receive Date: 20160420
  Receipt Date: 20160422
  Transmission Date: 20160815
  Serious: Yes (Other)
  Sender: FDA-Public Use
  Company Number: PHHY2016JP045141

PATIENT
  Age: 82 Year
  Sex: Female

DRUGS (3)
  1. CARBOPLATIN. [Suspect]
     Active Substance: CARBOPLATIN
     Indication: ENDOMETRIAL CANCER STAGE III
     Route: 065
  2. PACLITAXEL. [Suspect]
     Active Substance: PACLITAXEL
     Indication: ENDOMETRIAL CANCER STAGE III
     Dosage: 175 MG/M2, UNK
     Route: 065
  3. DOCETAXEL. [Suspect]
     Active Substance: DOCETAXEL
     Indication: ENDOMETRIAL CANCER STAGE III
     Dosage: 70 MG/M2, UNK
     Route: 065

REACTIONS (4)
  - Pleural effusion [Recovered/Resolved]
  - Ascites [Unknown]
  - Dyspnoea [Recovered/Resolved]
  - Endometrial cancer recurrent [Recovered/Resolved]
